FAERS Safety Report 12970843 (Version 2)
Quarter: 2016Q4

REPORT INFORMATION
  Report Type: Spontaneous
  Country: US (occurrence: US)
  Receive Date: 20161123
  Receipt Date: 20161129
  Transmission Date: 20170207
  Serious: Yes (Hospitalization)
  Sender: FDA-Public Use
  Company Number: US-UNITED THERAPEUTICS-UNT-2016-015499

PATIENT
  Age: 74 Year
  Sex: Male
  Weight: 80.27 kg

DRUGS (4)
  1. REMODULIN [Suspect]
     Active Substance: TREPROSTINIL
     Dosage: 0.0106 ?G/KG, CONTINUING
     Route: 041
  2. CHLORAPREP [Suspect]
     Active Substance: CHLORHEXIDINE GLUCONATE\ISOPROPYL ALCOHOL
     Indication: PRODUCT USED FOR UNKNOWN INDICATION
     Route: 065
  3. ADCIRCA [Concomitant]
     Active Substance: TADALAFIL
     Indication: PRODUCT USED FOR UNKNOWN INDICATION
  4. REMODULIN [Suspect]
     Active Substance: TREPROSTINIL
     Indication: PULMONARY ARTERIAL HYPERTENSION
     Dosage: 0.0101 ?G/KG, CONTINUING
     Route: 041
     Dates: start: 20160603

REACTIONS (6)
  - Device related infection [Unknown]
  - Injection site erythema [Unknown]
  - Injection site rash [Unknown]
  - Injection site infection [Unknown]
  - Dermatitis contact [Unknown]
  - Injection site discharge [Unknown]

NARRATIVE: CASE EVENT DATE: 20160929
